FAERS Safety Report 8264743-4 (Version None)
Quarter: 2012Q2

REPORT INFORMATION
  Report Type: 
  Country: None (occurrence: None)
  Receive Date: 20120404
  Receipt Date: 20120325
  Transmission Date: 20120825
  Serious: Yes (Hospitalization, Other)
  Sender: FDA-Public Use
  Company Number: AUR-APL-2012-01163

PATIENT
  Age: 25 Year
  Sex: Male
  Weight: 69.39 kg

DRUGS (2)
  1. MECLIZINE [Concomitant]
  2. AMOXICILLIN [Suspect]
     Indication: CHRONIC SINUSITIS
     Dosage: 1500 MG (500 MG,3 IN 1 D),ORAL, (500 MG)
     Route: 047
     Dates: start: 20111205, end: 20111216

REACTIONS (22)
  - LOCAL SWELLING [None]
  - BODY DYSMORPHIC DISORDER [None]
  - ABDOMINAL DISCOMFORT [None]
  - TINNITUS [None]
  - EYE DISORDER [None]
  - RADIATION EXPOSURE [None]
  - NERVE INJURY [None]
  - ABDOMINAL PAIN UPPER [None]
  - PRODUCT COUNTERFEIT [None]
  - INFECTION [None]
  - GENITAL PAIN [None]
  - VIITH NERVE PARALYSIS [None]
  - DEPRESSION [None]
  - SKIN DISCOLOURATION [None]
  - NEUROPATHY PERIPHERAL [None]
  - PRODUCT QUALITY ISSUE [None]
  - RASH [None]
  - CHRONIC SINUSITIS [None]
  - SKIN ATROPHY [None]
  - JAW DISORDER [None]
  - WEIGHT DECREASED [None]
  - HYPOAESTHESIA [None]
